FAERS Safety Report 7836910-2 (Version None)
Quarter: 2011Q4

REPORT INFORMATION
  Report Type: 
  Country: None (occurrence: None)
  Receive Date: 20111024
  Receipt Date: 20101215
  Transmission Date: 20120403
  Serious: No
  Sender: FDA-Public Use
  Company Number: US-ABBOTT-10P-163-0692237-00

PATIENT
  Sex: Female
  Weight: 92.616 kg

DRUGS (3)
  1. HYDROCORTISONE [Concomitant]
     Indication: PRODUCT USED FOR UNKNOWN INDICATION
  2. LUPRON DEPOT [Suspect]
     Indication: ENDOMETRIOSIS
     Dates: start: 20101108
  3. ANTINAUSEA MEDICATION [Concomitant]
     Indication: NAUSEA

REACTIONS (4)
  - MOOD SWINGS [None]
  - CARDIAC FLUTTER [None]
  - CHEST PAIN [None]
  - FATIGUE [None]
